FAERS Safety Report 25842464 (Version 1)
Quarter: 2025Q3

REPORT INFORMATION
  Report Type: Spontaneous
  Country: TW (occurrence: TW)
  Receive Date: 20250924
  Receipt Date: 20250924
  Transmission Date: 20251021
  Serious: Yes (Other)
  Sender: JOHNSON AND JOHNSON
  Company Number: TW-JNJFOC-20250933673

PATIENT
  Age: 38 Year
  Sex: Male

DRUGS (1)
  1. RYBREVANT [Suspect]
     Active Substance: AMIVANTAMAB-VMJW
     Indication: Small cell lung cancer
     Dosage: ONCE WEEKLY, THEN SWITCHED TO EVERY 2 WEEKS
     Route: 065

REACTIONS (1)
  - Necrosis [Recovered/Resolved]
